FAERS Safety Report 12934626 (Version 1)
Quarter: 2016Q4

REPORT INFORMATION
  Report Type: Spontaneous
  Country: GB (occurrence: GB)
  Receive Date: 20161111
  Receipt Date: 20161111
  Transmission Date: 20170207
  Serious: Yes (Life-Threatening, Hospitalization, Other)
  Sender: FDA-Public Use
  Company Number: GB-GILEAD-2016-0242743

PATIENT
  Age: 51 Year
  Sex: Male
  Weight: 64 kg

DRUGS (2)
  1. DOLUTEGRAVIR [Suspect]
     Active Substance: DOLUTEGRAVIR
     Indication: HIV TEST POSITIVE
     Dosage: STANDARD DOSING REGIME
     Route: 048
     Dates: start: 20160707, end: 20160913
  2. TRUVADA [Suspect]
     Active Substance: EMTRICITABINE\TENOFOVIR DISOPROXIL FUMARATE
     Indication: HIV TEST POSITIVE
     Dosage: STANDARD DOSING REGIME
     Route: 048
     Dates: start: 20160707, end: 20160913

REACTIONS (5)
  - Staphylococcal infection [Unknown]
  - Hepatic failure [Recovering/Resolving]
  - Hepatorenal syndrome [Unknown]
  - Malaise [Unknown]
  - Neutropenia [Unknown]

NARRATIVE: CASE EVENT DATE: 20160707
